FAERS Safety Report 15447910 (Version 1)
Quarter: 2018Q3

REPORT INFORMATION
  Report Type: Spontaneous
  Country: AU (occurrence: AU)
  Receive Date: 20180928
  Receipt Date: 20180928
  Transmission Date: 20181010
  Serious: Yes (Hospitalization, Other)
  Sender: FDA-Public Use
  Company Number: AU-009507513-1809AUS012919

PATIENT
  Age: 58 Year
  Sex: Male

DRUGS (1)
  1. EZETIMIBE MSD [Suspect]
     Active Substance: EZETIMIBE
     Indication: BLOOD CHOLESTEROL
     Dosage: UNK
     Route: 048
     Dates: start: 20171018, end: 20180109

REACTIONS (2)
  - Haemolysis [Unknown]
  - Anaemia [Unknown]

NARRATIVE: CASE EVENT DATE: 20171213
